FAERS Safety Report 7584901-1 (Version None)
Quarter: 2011Q2

REPORT INFORMATION
  Report Type: 
  Country: None (occurrence: None)
  Receive Date: 20110630
  Receipt Date: 20110627
  Transmission Date: 20111010
  Serious: Yes (Death)
  Sender: FDA-Public Use
  Company Number: PHHY2010DE92267

PATIENT
  Sex: Male
  Weight: 82 kg

DRUGS (6)
  1. BUPRENORPHINE [Concomitant]
     Dosage: 2 X 0.214
     Route: 048
  2. ACETAMINOPHEN [Concomitant]
     Dosage: 500 MG
     Route: 048
  3. VOLTAREN [Concomitant]
  4. PANTOPRAZOLE [Concomitant]
  5. SANDOSTATIN [Suspect]
     Indication: PANCREATIC NEUROENDOCRINE TUMOUR
     Dosage: 180 MG
     Route: 058
     Dates: start: 20091201
  6. SANDOSTATIN LAR [Suspect]
     Indication: PANCREATIC NEUROENDOCRINE TUMOUR
     Dosage: 20 MG
     Route: 030

REACTIONS (3)
  - PULMONARY EMBOLISM [None]
  - COUGH [None]
  - NEOPLASM MALIGNANT [None]
